FAERS Safety Report 9641605 (Version 5)
Quarter: 2014Q1

REPORT INFORMATION
  Report Type: Spontaneous
  Country: US (occurrence: US)
  Receive Date: 20131023
  Receipt Date: 20140109
  Transmission Date: 20141002
  Serious: Yes (Other)
  Sender: FDA-Public Use
  Company Number: US-BAYER-2013-128410

PATIENT
  Age: 45 Year
  Sex: Female
  Weight: 67 kg

DRUGS (4)
  1. MIRENA [Suspect]
     Indication: MENORRHAGIA
     Dosage: 20 MCG/24HR, CONT
     Route: 015
     Dates: start: 20130508, end: 20131018
  2. LORAZEPAM [Concomitant]
     Indication: ANXIETY
     Dosage: 1 MG, TID
  3. OXYBUTYNIN CHLORIDE [Concomitant]
     Indication: CYSTITIS INTERSTITIAL
     Dosage: 5 MG, TID
  4. PAROXETINE HYDROCHLORIDE [Concomitant]
     Indication: PREMENSTRUAL DYSPHORIC DISORDER
     Dosage: 40 MG, UNK

REACTIONS (10)
  - Genital haemorrhage [Not Recovered/Not Resolved]
  - Abdominal pain lower [Recovering/Resolving]
  - Abdominal pain lower [Not Recovered/Not Resolved]
  - Abdominal distension [Not Recovered/Not Resolved]
  - Device dislocation [None]
  - Fatigue [None]
  - Fungal infection [Recovered/Resolved]
  - Pelvic pain [None]
  - Vaginal discharge [None]
  - Bacterial vaginosis [None]
